FAERS Safety Report 4747279-4 (Version None)
Quarter: 2005Q3

REPORT INFORMATION
  Report Type: 
  Country: None (occurrence: None)
  Receive Date: 20050817
  Receipt Date: 20050811
  Transmission Date: 20060218
  Serious: Yes (Hospitalization, Other)
  Sender: FDA-Public Use
  Company Number: DE-MERCK-0508DEU00102

PATIENT
  Age: 69 Year
  Sex: Female

DRUGS (6)
  1. COZAAR [Suspect]
     Indication: HYPERTENSION
     Route: 048
  2. ATENOLOL [Concomitant]
     Route: 065
  3. TORSEMIDE [Concomitant]
     Route: 065
  4. DIAZEPAM [Concomitant]
     Indication: SLEEP DISORDER
     Route: 065
  5. ATORVASTATIN CALCIUM [Concomitant]
     Route: 065
  6. ASPIRIN [Concomitant]
     Route: 065

REACTIONS (9)
  - ABDOMINAL DISCOMFORT [None]
  - ANGINA PECTORIS [None]
  - ANGINA UNSTABLE [None]
  - APHASIA [None]
  - DYSPNOEA [None]
  - FOOD AVERSION [None]
  - HEADACHE [None]
  - TRANSIENT ISCHAEMIC ATTACK [None]
  - VISUAL DISTURBANCE [None]
